FAERS Safety Report 4721284-6 (Version None)
Quarter: 2005Q3

REPORT INFORMATION
  Report Type: 
  Country: None (occurrence: None)
  Receive Date: 20050721
  Receipt Date: 20040401
  Transmission Date: 20060218
  Serious: No
  Sender: FDA-Public Use
  Company Number: US-BRISTOL-MYERS SQUIBB COMPANY-12548509

PATIENT
  Age: 88 Year
  Sex: Female
  Weight: 61 kg

DRUGS (6)
  1. COUMADIN [Suspect]
     Indication: BLOOD VISCOSITY INCREASED
     Dosage: 7.5MG 3 X'S WEEK + 2.5MG 2 X'S WEEK = 47.5MG WEEKLY TOTAL
     Route: 048
     Dates: start: 20030501
  2. COUMADIN [Suspect]
     Indication: ATRIAL FIBRILLATION
     Dosage: 7.5MG 3 X'S WEEK + 2.5MG 2 X'S WEEK = 47.5MG WEEKLY TOTAL
     Route: 048
     Dates: start: 20030501
  3. TOPROL-XL [Concomitant]
  4. CARDIZEM [Concomitant]
  5. LIPITOR [Concomitant]
  6. WATER [Concomitant]

REACTIONS (1)
  - NAIL DISORDER [None]
